FAERS Safety Report 7480476-6 (Version None)
Quarter: 2011Q2

REPORT INFORMATION
  Report Type: 
  Country: None (occurrence: None)
  Receive Date: 20110512
  Receipt Date: 20110512
  Transmission Date: 20111010
  Serious: Yes (Hospitalization)
  Sender: FDA-Public Use
  Company Number: None

PATIENT
  Age: 49 Year
  Sex: Male
  Weight: 68.0396 kg

DRUGS (5)
  1. METHOTREXATE [Suspect]
     Indication: BLADDER CANCER
     Dosage: CHEMO-ONCE EVERY 2 WEEKS  CYCLE 1 ON 04/05/2011, CYCLE 3 GIVEN 05/03/2011
  2. NEULASTA [Suspect]
     Indication: BLADDER CANCER
     Dosage: NEULASTA - ON DAY 2
  3. DOXORUBICIN HCL [Suspect]
     Indication: BLADDER CANCER
     Dosage: CHEMO-ONCE EVERY 2 WEEKS CYCLE 1 ON 04/05/2011 CYCLE 3 GIVEN 05/03/2011
  4. VINBLASTINE SULFATE [Suspect]
     Indication: BLADDER CANCER
     Dosage: CHEMO-ONCE EVERY 2 WEEKS CYCLE 1 ON 04/05/2011  CYCLE 3 GIVEN 05/03/2011
  5. CISPLATIN [Suspect]
     Indication: BLADDER CANCER
     Dosage: CHEMO-ONCE EVERY 2 WEEKS CYCLE 1 ON 04/05/2011 CYCLE 3 GIVEN  05/03/2011

REACTIONS (5)
  - GROIN PAIN [None]
  - OSTEOARTHRITIS [None]
  - VOMITING [None]
  - BACK PAIN [None]
  - NAUSEA [None]
